FAERS Safety Report 6644287-3 (Version None)
Quarter: 2010Q1

REPORT INFORMATION
  Report Type: 
  Country: None (occurrence: None)
  Receive Date: 20100319
  Receipt Date: 20100319
  Transmission Date: 20100710
  Serious: Yes (Death)
  Sender: FDA-Public Use
  Company Number: None

PATIENT
  Age: 73 Year
  Sex: Female

DRUGS (9)
  1. CYTOXAN [Suspect]
     Indication: BREAST CANCER
     Dosage: ? OF 3 WEEKLY IV, COMPLETED CEMO COURSE
     Route: 042
     Dates: start: 20090701, end: 20091201
  2. RANITIDINE [Concomitant]
  3. ACEPHEX [Concomitant]
  4. EVISTA [Concomitant]
  5. BACTRIM [Concomitant]
  6. M.V.I. [Concomitant]
  7. VIT D [Concomitant]
  8. POTASSIUM CHLORIDE [Concomitant]
  9. CODEINE (PHENERGAN [Concomitant]

REACTIONS (6)
  - CEREBRAL INFARCTION [None]
  - CEREBROVASCULAR ACCIDENT [None]
  - COUGH [None]
  - DYSPNOEA [None]
  - GENERAL PHYSICAL HEALTH DETERIORATION [None]
  - PULMONARY TOXICITY [None]
